FAERS Safety Report 17270559 (Version 2)
Quarter: 2020Q1

REPORT INFORMATION
  Report Type: Report from Study
  Country: CA (occurrence: CA)
  Receive Date: 20200114
  Receipt Date: 20200115
  Transmission Date: 20200409
  Serious: Yes (Hospitalization)
  Sender: FDA-Public Use
  Company Number: CA-HLSUS-2019-CA-001697

PATIENT
  Age: 72 Year
  Sex: Female
  Weight: 70.7 kg

DRUGS (3)
  1. CEFTRIAXONE. [Concomitant]
     Active Substance: CEFTRIAXONE
     Indication: UROSEPSIS
  2. ARIPIPRAZOLE. [Concomitant]
     Active Substance: ARIPIPRAZOLE
     Indication: SCHIZOPHRENIA
     Route: 048
  3. CLOZARIL [Suspect]
     Active Substance: CLOZAPINE
     Indication: SCHIZOPHRENIA
     Route: 048
     Dates: start: 20061004, end: 20181206

REACTIONS (6)
  - Neutropenia [Unknown]
  - Urosepsis [Recovered/Resolved]
  - Platelet count increased [Unknown]
  - White blood cell count decreased [Unknown]
  - Systemic inflammatory response syndrome [Unknown]
  - Liver function test increased [Unknown]

NARRATIVE: CASE EVENT DATE: 20191129
